FAERS Safety Report 10397387 (Version 1)
Quarter: 2014Q3

REPORT INFORMATION
  Report Type: Spontaneous
  Country: US (occurrence: US)
  Receive Date: 20140820
  Receipt Date: 20140820
  Transmission Date: 20150326
  Serious: Yes (Death, Hospitalization)
  Sender: FDA-Public Use
  Company Number: US-B.I. PHARMACEUTICALS,INC./RIDGEFIELD-2014-BI-37501BP

PATIENT
  Age: 67 Year
  Sex: Female
  Weight: 102.06 kg

DRUGS (10)
  1. PRADAXA [Suspect]
     Active Substance: DABIGATRAN ETEXILATE MESYLATE
     Indication: ATRIAL FIBRILLATION
     Dosage: 150 MG
     Route: 048
     Dates: end: 20120620
  2. AMLODIPINE [Concomitant]
     Active Substance: AMLODIPINE BESYLATE
     Dosage: 10 MG
     Route: 048
  3. LASIX [Concomitant]
     Active Substance: FUROSEMIDE
     Dosage: 40 MG
     Route: 048
  4. SOTALOL HCL [Concomitant]
     Active Substance: SOTALOL
     Route: 048
  5. PRILOSEC [Concomitant]
     Active Substance: OMEPRAZOLE MAGNESIUM
     Dosage: 20 MG
     Route: 048
  6. HUMULIN NOS [Concomitant]
     Active Substance: INSULIN HUMAN
     Dosage: ROUTE: SQ
     Route: 058
  7. DILTIAZEM HCL [Concomitant]
     Active Substance: DILTIAZEM HYDROCHLORIDE
     Dosage: 240 MG
     Route: 048
  8. KLOR CON [Concomitant]
     Dosage: 10 MEQ
     Route: 048
  9. MULTIVITAMIN [Concomitant]
     Active Substance: VITAMINS
     Route: 048
  10. ZANTAC [Concomitant]
     Active Substance: RANITIDINE HYDROCHLORIDE
     Dosage: 300 MG
     Route: 048

REACTIONS (5)
  - Gastrointestinal haemorrhage [Fatal]
  - Anaemia [Fatal]
  - Ascites [Fatal]
  - Haemothorax [Fatal]
  - Chronic hepatic failure [Fatal]

NARRATIVE: CASE EVENT DATE: 201206
